FAERS Safety Report 19666279 (Version 1)
Quarter: 2021Q3

REPORT INFORMATION
  Report Type: Spontaneous
  Country: US (occurrence: US)
  Receive Date: 20210806
  Receipt Date: 20210806
  Transmission Date: 20211014
  Serious: Yes (Life-Threatening, Hospitalization)
  Sender: FDA-Public Use
  Company Number: None

PATIENT
  Age: 77 Year
  Sex: Female
  Weight: 78 kg

DRUGS (1)
  1. BARICITINIB. [Suspect]
     Active Substance: BARICITINIB
     Indication: COVID-19
     Route: 048
     Dates: start: 20210726, end: 20210730

REACTIONS (4)
  - Acute kidney injury [None]
  - Infection [None]
  - Blood culture positive [None]
  - Pseudomonas infection [None]

NARRATIVE: CASE EVENT DATE: 20210730
